FAERS Safety Report 9140316 (Version 2)
Quarter: 2013Q1

REPORT INFORMATION
  Report Type: Report from Study
  Country: JP (occurrence: JP)
  Receive Date: 20130305
  Receipt Date: 20130325
  Transmission Date: 20140127
  Serious: Yes (Hospitalization)
  Sender: FDA-Public Use
  Company Number: JP-ABBOTT-13P-087-1054961-00

PATIENT
  Age: 61 Year
  Sex: Male
  Weight: 62 kg

DRUGS (16)
  1. HUMIRA [Suspect]
     Indication: BEHCET^S SYNDROME
     Route: 058
     Dates: start: 20110119, end: 20110119
  2. HUMIRA [Suspect]
     Route: 058
     Dates: start: 20110202, end: 20110202
  3. HUMIRA [Suspect]
     Route: 058
     Dates: start: 20110216
  4. NORVASC [Concomitant]
     Indication: HYPERTENSION
     Route: 048
     Dates: start: 20101129
  5. PARIET [Concomitant]
     Indication: GASTRITIS ATROPHIC
     Route: 048
     Dates: start: 20101018
  6. DAIKENCHATE [Concomitant]
     Indication: CONSTIPATION
     Route: 048
     Dates: start: 20130220
  7. CRESTOR [Concomitant]
     Indication: HYPERLIPIDAEMIA
     Dates: start: 20110113
  8. AMARYL [Concomitant]
     Indication: TYPE 2 DIABETES MELLITUS
     Route: 048
     Dates: start: 20111112
  9. BUSCOPAN [Concomitant]
     Indication: ABDOMINAL PAIN
     Route: 048
     Dates: start: 20121001
  10. CRAVIT [Concomitant]
     Indication: INFECTION
     Route: 048
     Dates: start: 20130220
  11. MAGMITT [Concomitant]
     Indication: CONSTIPATION
     Route: 048
     Dates: start: 20130212
  12. RACOL [Concomitant]
     Indication: BEHCET^S SYNDROME
     Route: 048
     Dates: start: 20111128
  13. TELEMINSOFT [Concomitant]
     Indication: CONSTIPATION
     Dates: start: 20130206
  14. PLETAAL OD [Concomitant]
     Indication: PROPHYLAXIS
     Route: 048
     Dates: start: 20120709
  15. PLETAAL OD [Concomitant]
     Indication: INFARCTION
  16. PLETAAL OD [Concomitant]
     Indication: INFECTION

REACTIONS (1)
  - Subileus [Recovering/Resolving]
